FAERS Safety Report 8883148 (Version 2)
Quarter: 2013Q1

REPORT INFORMATION
  Report Type: Spontaneous
  Country: CH (occurrence: CH)
  Receive Date: 20121104
  Receipt Date: 20130124
  Transmission Date: 20140127
  Serious: Yes (Hospitalization, Other)
  Sender: FDA-Public Use
  Company Number: CH-JNJFOC-20121016788

PATIENT
  Age: 68 Year
  Sex: Female

DRUGS (9)
  1. XARELTO [Suspect]
     Indication: THROMBOSIS PROPHYLAXIS
     Route: 048
     Dates: start: 20120904, end: 20120927
  2. XARELTO [Suspect]
     Indication: HIP ARTHROPLASTY
     Route: 048
     Dates: start: 20120904, end: 20120927
  3. VI-DE 3 [Concomitant]
     Route: 065
  4. CALCIMAGON-D3 [Concomitant]
     Route: 065
  5. ESOMEPRAZOLE [Concomitant]
     Route: 065
  6. SALAZOPYRIN [Concomitant]
     Route: 065
  7. MOCLO A [Concomitant]
     Route: 065
  8. KCL-RETARD [Concomitant]
     Route: 065
  9. IRFEN [Concomitant]
     Route: 065

REACTIONS (2)
  - Pulmonary embolism [Recovering/Resolving]
  - Drug ineffective [Unknown]
